FAERS Safety Report 6934904-2 (Version None)
Quarter: 2010Q3

REPORT INFORMATION
  Report Type: 
  Country: None (occurrence: None)
  Receive Date: 20100821
  Receipt Date: 20100807
  Transmission Date: 20110219
  Serious: Yes (Other)
  Sender: FDA-Public Use
  Company Number: PHHY2010BR44646

PATIENT
  Sex: Female

DRUGS (8)
  1. EXFORGE [Suspect]
     Indication: HYPERTENSION
     Dosage: ONE TABLET (160/5 MG) TWICE DAILY
     Route: 048
  2. INSULIN [Concomitant]
     Indication: DIABETES MELLITUS
     Dosage: 20 UNITS IN THE MORNING AND 10 UNITS AT NIGHT
     Route: 058
  3. METFORMIN [Concomitant]
     Indication: DIABETES MELLITUS
     Dosage: 850 MG, TID
     Route: 048
  4. ETNA [Concomitant]
     Indication: DIABETES MELLITUS
     Dosage: 1 DF, BID
     Route: 048
  5. BENERVA [Concomitant]
     Indication: DIABETES MELLITUS
     Dosage: 300 MG, BID
     Route: 048
  6. SIMVASTATIN [Concomitant]
     Indication: BLOOD CHOLESTEROL INCREASED
     Dosage: 1 TABLET (20 MG) IN ALTERATIVE DAYS
     Route: 048
  7. CIPROFIBRATE [Concomitant]
     Indication: BLOOD TRIGLYCERIDES INCREASED
     Dosage: 1 TABLET (100 MG) IN ALTERNATIVE DAYS
     Route: 048
  8. PANTOPRAZOLE [Concomitant]
     Indication: DYSPEPSIA
     Dosage: 20 MG, BID
     Route: 048

REACTIONS (5)
  - BLINDNESS UNILATERAL [None]
  - EYE SWELLING [None]
  - HYPERTENSION [None]
  - RETINAL HAEMORRHAGE [None]
  - RETINAL OPERATION [None]
